FAERS Safety Report 19548908 (Version 1)
Quarter: 2021Q3

REPORT INFORMATION
  Report Type: Spontaneous
  Country: US (occurrence: US)
  Receive Date: 20210715
  Receipt Date: 20210715
  Transmission Date: 20211014
  Serious: No
  Sender: FDA-Public Use
  Company Number: None

PATIENT
  Age: 77 Year
  Sex: Male
  Weight: 82 kg

DRUGS (1)
  1. PEMBROLIZUMAB (PEMBROLIZUMAB 50MG/VIL INJ) [Suspect]
     Active Substance: PEMBROLIZUMAB
     Indication: OESOPHAGEAL ADENOCARCINOMA
     Dosage: OTHER
     Route: 042
     Dates: start: 20210310, end: 20210310

REACTIONS (4)
  - Pain [None]
  - Liver function test increased [None]
  - Lethargy [None]
  - Hyperthyroidism [None]

NARRATIVE: CASE EVENT DATE: 20210412
